FAERS Safety Report 13660292 (Version 1)
Quarter: 2017Q2

REPORT INFORMATION
  Report Type: Spontaneous
  Country: US (occurrence: US)
  Receive Date: 20170615
  Receipt Date: 20170615
  Transmission Date: 20170830
  Serious: No
  Sender: FDA-Public Use
  Company Number: None

PATIENT
  Age: 34 Year
  Sex: Female

DRUGS (1)
  1. PROGESTERONE IN SESAME OIL 50MG/ML WATSON [Suspect]
     Active Substance: PROGESTERONE
     Indication: INFERTILITY
     Route: 030
     Dates: start: 20170523, end: 20170612

REACTIONS (4)
  - Product formulation issue [None]
  - Pruritus [None]
  - Urticaria [None]
  - Injection site swelling [None]

NARRATIVE: CASE EVENT DATE: 20170612
